FAERS Safety Report 25161069 (Version 1)
Quarter: 2025Q2

REPORT INFORMATION
  Report Type: Spontaneous
  Country: CH (occurrence: CH)
  Receive Date: 20250404
  Receipt Date: 20250404
  Transmission Date: 20250717
  Serious: Yes (Life-Threatening, Other)
  Sender: UCB
  Company Number: None

PATIENT
  Age: 49 Year
  Sex: Male
  Weight: 75 kg

DRUGS (11)
  1. VIMPAT [Suspect]
     Active Substance: LACOSAMIDE
     Indication: Status epilepticus
     Dosage: 200 MILLIGRAM, 2X/DAY (BID)
     Route: 042
     Dates: start: 20250313, end: 20250316
  2. VIMPAT [Suspect]
     Active Substance: LACOSAMIDE
     Indication: Off label use
  3. ROCEPHIN [Suspect]
     Active Substance: CEFTRIAXONE SODIUM
     Indication: Neurosyphilis
     Dosage: 2 GRAM, 2X/DAY (BID)
     Route: 042
     Dates: start: 20250316
  4. ESKETAMINE [Suspect]
     Active Substance: ESKETAMINE
     Indication: Status epilepticus
     Route: 042
     Dates: start: 20250316
  5. KEPPRA [Concomitant]
     Active Substance: LEVETIRACETAM
     Indication: Status epilepticus
     Dosage: 1500 MILLIGRAM, 2X/DAY (BID)
     Route: 042
     Dates: start: 20250313
  6. DICLOFENAC [Concomitant]
     Active Substance: DICLOFENAC
     Indication: Jarisch-Herxheimer reaction
     Dosage: 50 MILLIGRAM, 2X/DAY (BID)
     Route: 048
     Dates: start: 20250316
  7. PROPOFOL [Concomitant]
     Active Substance: PROPOFOL
     Indication: Status epilepticus
     Route: 042
     Dates: start: 20250313, end: 20250316
  8. VALPROATE SODIUM [Concomitant]
     Active Substance: VALPROATE SODIUM
     Indication: Status epilepticus
     Dosage: 1000 MILLIGRAM, 2X/DAY (BID)
     Route: 042
     Dates: start: 20250313
  9. METRONIDAZOL BENZOATE [Concomitant]
     Indication: Neurosyphilis
     Dosage: 500 MILLIGRAM, 3X/DAY (TID)
     Route: 042
     Dates: start: 20250316
  10. MIDAZOLAM HYDROCHLORIDE [Concomitant]
     Active Substance: MIDAZOLAM HYDROCHLORIDE
     Indication: Status epilepticus
     Route: 042
     Dates: start: 20250313
  11. FYCOMPA [Concomitant]
     Active Substance: PERAMPANEL
     Indication: Status epilepticus
     Route: 048
     Dates: start: 20250316

REACTIONS (2)
  - Arrhythmia [Not Recovered/Not Resolved]
  - Off label use [Unknown]

NARRATIVE: CASE EVENT DATE: 20250313
